FAERS Safety Report 19572956 (Version 1)
Quarter: 2021Q3

REPORT INFORMATION
  Report Type: Spontaneous
  Country: ES (occurrence: ES)
  Receive Date: 20210715
  Receipt Date: 20210715
  Transmission Date: 20211014
  Serious: Yes (Other)
  Sender: FDA-Public Use
  Company Number: ES-CANTON LABORATORIES, LLC-2113903

PATIENT
  Age: 76 Year
  Sex: Male

DRUGS (3)
  1. OLMETEC [Concomitant]
     Active Substance: OLMESARTAN MEDOXOMIL
     Route: 065
  2. PRAVASTATINA [Concomitant]
     Active Substance: PRAVASTATIN SODIUM
     Route: 065
  3. NAPROSYN [Suspect]
     Active Substance: NAPROXEN
     Indication: BACK PAIN
     Route: 048
     Dates: start: 20210511, end: 20210511

REACTIONS (6)
  - Formication [Unknown]
  - Urticaria [Unknown]
  - Lip oedema [Unknown]
  - Palatal oedema [Unknown]
  - Rash [Unknown]
  - Paraesthesia oral [Unknown]

NARRATIVE: CASE EVENT DATE: 20210511
